FAERS Safety Report 7979526-X (Version None)
Quarter: 2011Q4

REPORT INFORMATION
  Report Type: 
  Country: None (occurrence: None)
  Receive Date: 20111214
  Receipt Date: 20111206
  Transmission Date: 20120403
  Serious: Yes (Hospitalization)
  Sender: FDA-Public Use
  Company Number: PHEH2011US011358

PATIENT
  Sex: Male
  Weight: 50 kg

DRUGS (6)
  1. CREON [Concomitant]
  2. DANAZOL [Concomitant]
     Dosage: 200 MG, QD
  3. TOBI [Suspect]
  4. ZITHROMAX [Concomitant]
  5. NASONEX [Concomitant]
  6. ADVAIR DISKUS 100/50 [Concomitant]

REACTIONS (23)
  - LUNG DISORDER [None]
  - ANAEMIA [None]
  - ARTHRALGIA [None]
  - OXYGEN SATURATION DECREASED [None]
  - CHRONIC SINUSITIS [None]
  - PSEUDOMONAS INFECTION [None]
  - BRONCHIECTASIS [None]
  - PULMONARY FUNCTION TEST DECREASED [None]
  - COUGH [None]
  - FORCED EXPIRATORY VOLUME DECREASED [None]
  - IRON DEFICIENCY [None]
  - HAEMOPTYSIS [None]
  - PULMONARY ARTERIAL HYPERTENSION [None]
  - PNEUMONIA [None]
  - INFECTIVE PULMONARY EXACERBATION OF CYSTIC FIBROSIS [None]
  - STAPHYLOCOCCAL INFECTION [None]
  - PLEURITIC PAIN [None]
  - DYSPNOEA [None]
  - PANCREATIC INSUFFICIENCY [None]
  - BREATH SOUNDS ABNORMAL [None]
  - CREPITATIONS [None]
  - VITAMIN A DEFICIENCY [None]
  - WEIGHT DECREASED [None]
